FAERS Safety Report 10029200 (Version 2)
Quarter: 2014Q1

REPORT INFORMATION
  Report Type: Spontaneous
  Country: US (occurrence: US)
  Receive Date: 20140321
  Receipt Date: 20140321
  Transmission Date: 20141002
  Serious: Yes (Other)
  Sender: FDA-Public Use
  Company Number: PHHY2014US011673

PATIENT
  Sex: Male

DRUGS (11)
  1. BACLOFEN [Suspect]
     Indication: MUSCLE SPASTICITY
     Dosage: 415 UG, PER DAY
     Route: 037
     Dates: start: 20120321
  2. BACLOFEN [Suspect]
     Dosage: 200 UG/DAY
     Route: 037
  3. FLUOXETINE [Suspect]
     Dosage: UNK UKN, UNK
  4. NEURONTIN [Suspect]
     Dosage: UNK UKN, UNK
  5. PROTONIX [Suspect]
     Dosage: UNK UKN, UNK
  6. EFFEXOR [Suspect]
     Dosage: UNK UKN, UNK
  7. NORVASC [Suspect]
     Dosage: UNK UKN, UNK
  8. DULCOLAX [Suspect]
     Dosage: UNK UKN, UNK
  9. ROXICODONE [Suspect]
     Dosage: UNK UKN, UNK
  10. SEROXAT [Suspect]
     Dosage: UNK UKN, UNK
  11. CLOBEVATE [Suspect]
     Dosage: UNK UKN, UNK

REACTIONS (4)
  - Cyst [Unknown]
  - Muscle spasms [Unknown]
  - Muscle tightness [Unknown]
  - Muscle spasticity [Recovering/Resolving]
